FAERS Safety Report 4635344-1 (Version None)
Quarter: 2005Q2

REPORT INFORMATION
  Report Type: 
  Country: None (occurrence: None)
  Receive Date: 20050414
  Receipt Date: 20050408
  Transmission Date: 20051028
  Serious: Yes (Other)
  Sender: FDA-Public Use
  Company Number: US-ABBOTT-05P-163-0296892-00

PATIENT
  Sex: Male
  Weight: 132 kg

DRUGS (6)
  1. HUMIRA [Suspect]
     Indication: RHEUMATOID ARTHRITIS
     Route: 058
     Dates: start: 20030101
  2. INSULIN LISPRO [Concomitant]
     Indication: DIABETES MELLITUS
     Route: 058
     Dates: start: 19820101
  3. INSULIN ZINC SUSPENSION [Concomitant]
     Indication: DIABETES MELLITUS
     Route: 058
     Dates: start: 19820101
  4. LOSARTAN POTASSIUM [Concomitant]
     Indication: BLOOD PRESSURE INCREASED
     Route: 048
     Dates: start: 19820101
  5. CLONIDINE [Concomitant]
     Indication: BLOOD PRESSURE INCREASED
     Route: 048
     Dates: start: 19820101
  6. LEVOTHYROXINE SODIUM [Concomitant]
     Indication: THYROID DISORDER
     Route: 048
     Dates: start: 19820101

REACTIONS (1)
  - HYPOAESTHESIA [None]
